FAERS Safety Report 19537897 (Version 4)
Quarter: 2022Q1

REPORT INFORMATION
  Report Type: Report from Study
  Country: US (occurrence: US)
  Receive Date: 20210714
  Receipt Date: 20220104
  Transmission Date: 20220423
  Serious: No
  Sender: FDA-Public Use
  Company Number: NVSC2021US149642

PATIENT
  Age: 73 Year
  Sex: Female

DRUGS (2)
  1. ENTRESTO [Suspect]
     Active Substance: SACUBITRIL\VALSARTAN
     Indication: Product used for unknown indication
     Dosage: 50 MG, BID (24/26MG)
     Route: 048
  2. ENTRESTO [Suspect]
     Active Substance: SACUBITRIL\VALSARTAN
     Route: 048

REACTIONS (15)
  - Weight decreased [Unknown]
  - Dyspnoea [Unknown]
  - Weight increased [Unknown]
  - Fungal infection [Recovering/Resolving]
  - Hand fracture [Recovering/Resolving]
  - Swelling [Recovering/Resolving]
  - Eye contusion [Recovering/Resolving]
  - Nervousness [Unknown]
  - Mass [Recovering/Resolving]
  - Fatigue [Recovering/Resolving]
  - Cough [Unknown]
  - Fall [Recovering/Resolving]
  - Glycosylated haemoglobin decreased [Recovering/Resolving]
  - Anxiety [Unknown]
  - Product dose omission issue [Unknown]

NARRATIVE: CASE EVENT DATE: 20210401
